FAERS Safety Report 17838778 (Version 1)
Quarter: 2020Q2

REPORT INFORMATION
  Report Type: Spontaneous
  Country: US (occurrence: US)
  Receive Date: 20200528
  Receipt Date: 20200528
  Transmission Date: 20200714
  Serious: Yes (Other)
  Sender: FDA-Public Use
  Company Number: None

PATIENT
  Age: 51 Year
  Sex: Female
  Weight: 181 kg

DRUGS (16)
  1. ENOXAPARIN INJECTION [Concomitant]
     Active Substance: ENOXAPARIN
     Dates: start: 20200512
  2. LANSOPRAZOLE CAPSULE [Concomitant]
     Active Substance: LANSOPRAZOLE
     Dates: start: 20200519
  3. PANTOPRAZOLE TABLET [Concomitant]
     Active Substance: PANTOPRAZOLE
     Dates: start: 20200513, end: 20200518
  4. FUROSEMIDE INJECTION [Concomitant]
     Active Substance: FUROSEMIDE
     Dates: start: 20200522, end: 20200526
  5. HYDROXYCHLOROQUINE TABLET [Concomitant]
     Active Substance: HYDROXYCHLOROQUINE
     Dates: start: 20200513, end: 20200517
  6. METHYLPREDNISOLONE INJECTION [Concomitant]
     Active Substance: METHYLPREDNISOLONE SODIUM SUCCINATE
     Dates: start: 20200522, end: 20200526
  7. REMDESIVIR. [Suspect]
     Active Substance: REMDESIVIR
     Indication: COVID-19
     Route: 042
     Dates: start: 20200515, end: 20200524
  8. ATORVASTATIN TABLET [Concomitant]
     Active Substance: ATORVASTATIN
     Dates: start: 20200521
  9. VANCOMYCIN INJECTION [Concomitant]
     Active Substance: VANCOMYCIN
     Dates: start: 20200523, end: 20200526
  10. CEFTRIAXONE INJECTION [Concomitant]
     Active Substance: CEFTRIAXONE SODIUM
     Dates: start: 20200512, end: 20200516
  11. LEVOTHYROXINE TABLET [Concomitant]
     Active Substance: LEVOTHYROXINE
     Dates: start: 20200513
  12. PROPOFOL INJECTION [Concomitant]
     Active Substance: PROPOFOL
     Dates: start: 20200516
  13. LORAZEPAM INJECTION [Concomitant]
     Active Substance: LORAZEPAM
     Dates: start: 20200516
  14. GUAIFENESIN TABLET [Concomitant]
     Dates: start: 20200513, end: 20200520
  15. ACETAMINOPHEN TABLET [Concomitant]
     Active Substance: ACETAMINOPHEN
     Dates: start: 20200512
  16. ALPRAZOLAM TABLET [Concomitant]
     Active Substance: ALPRAZOLAM
     Dates: start: 20200516, end: 20200521

REACTIONS (1)
  - Blood creatine phosphokinase increased [None]

NARRATIVE: CASE EVENT DATE: 20200522
